FAERS Safety Report 18191046 (Version 1)
Quarter: 2020Q3

REPORT INFORMATION
  Report Type: Spontaneous
  Country: US (occurrence: US)
  Receive Date: 20200824
  Receipt Date: 20200824
  Transmission Date: 20201103
  Serious: No
  Sender: FDA-Public Use
  Company Number: US-ROCHE-2541449

PATIENT
  Sex: Male

DRUGS (1)
  1. ALECENSA [Suspect]
     Active Substance: ALECTINIB HYDROCHLORIDE
     Indication: INFLAMMATORY MYOFIBROBLASTIC TUMOUR
     Dosage: ONGOING UNKNOWN
     Route: 048
     Dates: start: 201912

REACTIONS (3)
  - Off label use [Unknown]
  - Intentional product use issue [Unknown]
  - Oral herpes [Unknown]
